FAERS Safety Report 9681833 (Version 1)
Quarter: 2013Q4

REPORT INFORMATION
  Report Type: Spontaneous
  Country: US (occurrence: US)
  Receive Date: 20131111
  Receipt Date: 20131111
  Transmission Date: 20140711
  Serious: No
  Sender: FDA-Public Use
  Company Number: US-PFIZER INC-2013319601

PATIENT
  Age: 77 Year
  Sex: Male

DRUGS (5)
  1. ALPRAZOLAM [Suspect]
     Indication: ANXIETY
     Dosage: 25 MG, 2X/DAY
     Dates: start: 1993
  2. ALPRAZOLAM [Suspect]
     Indication: DEPRESSION
  3. RAPAMUNE [Suspect]
     Indication: BLOOD PRESSURE ABNORMAL
     Dosage: UNK
  4. VALIUM [Suspect]
     Dosage: UNK
  5. AMLODIPINE [Concomitant]
     Indication: ANTICOAGULANT THERAPY
     Dosage: 5 MG, 1X/DAY

REACTIONS (6)
  - Insomnia [Unknown]
  - Headache [Unknown]
  - Drug resistance [Unknown]
  - Off label use [Unknown]
  - Drug ineffective [Unknown]
  - Expired drug administered [Unknown]
